FAERS Safety Report 4744954-2 (Version None)
Quarter: 2005Q3

REPORT INFORMATION
  Report Type: 
  Country: None (occurrence: None)
  Receive Date: 20050815
  Receipt Date: 20050413
  Transmission Date: 20060218
  Serious: Yes (Hospitalization, Other)
  Sender: FDA-Public Use
  Company Number: US-MERCK-0504USA02025

PATIENT
  Age: 79 Year
  Sex: Female
  Weight: 68 kg

DRUGS (6)
  1. VIOXX [Suspect]
     Indication: ARTHRITIS
     Route: 048
     Dates: start: 20000401, end: 20040714
  2. VIOXX [Suspect]
     Indication: PAIN
     Route: 048
     Dates: start: 20000401, end: 20040714
  3. FOLIC ACID [Concomitant]
     Indication: GASTRIC DISORDER
     Route: 048
     Dates: start: 19870101
  4. GLUCOSAMINE [Concomitant]
     Indication: ARTHRITIS
     Route: 048
     Dates: start: 19990101
  5. PROCARDIA [Concomitant]
     Route: 048
     Dates: start: 19900101, end: 20030501
  6. SYNTHROID [Concomitant]
     Indication: THYROID DISORDER
     Route: 048
     Dates: start: 19760101

REACTIONS (8)
  - BLOOD CHOLESTEROL INCREASED [None]
  - CARDIAC DISORDER [None]
  - CARDIAC FAILURE CONGESTIVE [None]
  - HYPOXIA [None]
  - MYOCARDIAL INFARCTION [None]
  - OEDEMA PERIPHERAL [None]
  - PERIPHERAL VASCULAR DISORDER [None]
  - THROMBOSIS [None]
